FAERS Safety Report 21919424 (Version 2)
Quarter: 2023Q1

REPORT INFORMATION
  Report Type: Spontaneous
  Country: DE (occurrence: DE)
  Receive Date: 20230127
  Receipt Date: 20230217
  Transmission Date: 20230418
  Serious: Yes (Other)
  Sender: FDA-Public Use
  Company Number: DE-BAYER-2023A005211

PATIENT
  Age: 78 Year
  Sex: Male

DRUGS (24)
  1. KERENDIA [Suspect]
     Active Substance: FINERENONE
     Indication: Nephroprotective therapy
     Dosage: 10 MG, OM
     Dates: start: 20221122, end: 20221219
  2. KERENDIA [Suspect]
     Active Substance: FINERENONE
     Indication: Hyperalbuminaemia
  3. CHOLECALCIFEROL [Concomitant]
     Active Substance: CHOLECALCIFEROL
     Dosage: 1000 IU, QD
  4. ATORVASTATIN [Concomitant]
     Active Substance: ATORVASTATIN
     Dosage: 40 MG, QD
  5. ATORVASTATIN [Concomitant]
     Active Substance: ATORVASTATIN
     Dosage: 20 MG, QD
  6. EZETIMIBE [Concomitant]
     Active Substance: EZETIMIBE
     Dosage: 10 MG, QD
  7. BISOPROLOL [Concomitant]
     Active Substance: BISOPROLOL
     Dosage: 2.5 MG, BID
  8. ENTRESTO [Concomitant]
     Active Substance: SACUBITRIL\VALSARTAN
     Dosage: 1 DF, BID
  9. ASPIRIN [Concomitant]
     Active Substance: ASPIRIN
     Dosage: 100 MG, QD
  10. XARELTO [Concomitant]
     Active Substance: RIVAROXABAN
     Dosage: 2.5 MG, BID
  11. LERCANIDIPINE [Concomitant]
     Active Substance: LERCANIDIPINE
     Dosage: 10 MG, BID
  12. NEPRESOL [HYDRALAZINE HYDROCHLORIDE] [Concomitant]
     Dosage: 25 MG, QID
  13. CLONIDINE [Concomitant]
     Active Substance: CLONIDINE
     Dosage: 150 MG, BID
  14. CLONIDINE [Concomitant]
     Active Substance: CLONIDINE
     Dosage: 75 MG, QD
  15. NITROLINGUAL [Concomitant]
     Active Substance: NITROGLYCERIN
  16. TORSEMIDE [Concomitant]
     Active Substance: TORSEMIDE
     Dosage: 10 MG, BID
  17. JARDIANCE [Concomitant]
     Active Substance: EMPAGLIFLOZIN
     Dosage: 10 MG, QD
  18. HUMALOG [Concomitant]
     Active Substance: INSULIN LISPRO
     Dosage: 10U - 6U - 6U
  19. LEVEMIR [Concomitant]
     Active Substance: INSULIN DETEMIR
     Dosage: 4 U, BID
  20. NALOXONE HYDROCHLORIDE\TILIDINE HYDROCHLORIDE [Concomitant]
     Active Substance: NALOXONE HYDROCHLORIDE\TILIDINE HYDROCHLORIDE
  21. PROPIVERINE [Concomitant]
     Active Substance: PROPIVERINE
     Dosage: 15 MG, QD
  22. ALLOPURINOL [Concomitant]
     Active Substance: ALLOPURINOL
     Dosage: 300 MG, QD
  23. ANORAN [Concomitant]
     Dosage: 1 DF
  24. PANTOPRAZOLE [Concomitant]
     Active Substance: PANTOPRAZOLE
     Dosage: 20 MG, QD

REACTIONS (3)
  - Visual impairment [Recovered/Resolved]
  - Dizziness [Recovered/Resolved]
  - Blood creatinine increased [Recovered/Resolved]

NARRATIVE: CASE EVENT DATE: 20220101
